FAERS Safety Report 11457004 (Version 1)
Quarter: 2015Q3

REPORT INFORMATION
  Report Type: Spontaneous
  Country: DE (occurrence: DE)
  Receive Date: 20150904
  Receipt Date: 20150904
  Transmission Date: 20151125
  Serious: Yes (Other)
  Sender: FDA-Public Use
  Company Number: DE-ROCHE-1629996

PATIENT
  Age: 29 Year
  Sex: Male

DRUGS (8)
  1. STANOZOLOL [Suspect]
     Active Substance: STANOZOLOL
     Indication: PRODUCT USED FOR UNKNOWN INDICATION
     Route: 065
     Dates: start: 2011
  2. SOMATROPIN [Suspect]
     Active Substance: SOMATROPIN
     Indication: DRUG ABUSE
     Dosage: 4 IE/DAY
     Route: 065
     Dates: start: 2011
  3. ALDOSTERONE [Suspect]
     Active Substance: ALDOSTERONE
     Indication: DRUG ABUSE
     Route: 065
  4. SUSTANON [Suspect]
     Active Substance: TESTOSTERONE DECANOATE\TESTOSTERONE ISOCAPROATE\TESTOSTERONE PHENYLPROPIONATE\TESTOSTERONE PROPIONATE
     Indication: PRODUCT USED FOR UNKNOWN INDICATION
     Route: 065
     Dates: start: 2011, end: 2012
  5. METANDIENONE [Suspect]
     Active Substance: METHANDROSTENOLONE
     Indication: PRODUCT USED FOR UNKNOWN INDICATION
     Dosage: 280-350MG
     Route: 065
     Dates: start: 2011, end: 2012
  6. TAMOXIFEN [Suspect]
     Active Substance: TAMOXIFEN
     Indication: PRODUCT USED FOR UNKNOWN INDICATION
     Route: 065
  7. NANDROLONE DECANOATE. [Suspect]
     Active Substance: NANDROLONE DECANOATE
     Indication: PRODUCT USED FOR UNKNOWN INDICATION
     Route: 065
     Dates: start: 2011, end: 2012
  8. INSULIN [Suspect]
     Active Substance: INSULIN NOS
     Indication: PRODUCT USED FOR UNKNOWN INDICATION
     Route: 065

REACTIONS (6)
  - Hepatocellular carcinoma [Recovered/Resolved]
  - Budd-Chiari syndrome [Recovered/Resolved]
  - Product use issue [Unknown]
  - Hypogonadism [Unknown]
  - Drug abuse [Unknown]
  - Anaemia [Unknown]
